FAERS Safety Report 10429660 (Version 2)
Quarter: 2014Q3

REPORT INFORMATION
  Report Type: Spontaneous
  Country: US (occurrence: US)
  Receive Date: 20140904
  Receipt Date: 20140904
  Transmission Date: 20150326
  Serious: Yes (Hospitalization)
  Sender: FDA-Public Use
  Company Number: US-NOVOPROD-416778

PATIENT
  Age: 76 Year
  Sex: Female
  Weight: 65.31 kg

DRUGS (3)
  1. NOVOLOG [Suspect]
     Active Substance: INSULIN ASPART
     Indication: TYPE 1 DIABETES MELLITUS
     Dosage: INSULIN DOSES BY CARBOHYDRATE COUNTING WITH EACH MEAL
     Route: 058
     Dates: start: 2003
  2. NOVOLOG [Suspect]
     Active Substance: INSULIN ASPART
     Dosage: INSULIN DOSES BY CARBOHYDRATE COUNTING WITH EACH MEAL
     Route: 058
     Dates: start: 2003
  3. NOVOLOG [Concomitant]
     Active Substance: INSULIN ASPART
     Indication: TYPE 1 DIABETES MELLITUS
     Dosage: UNK
     Route: 058

REACTIONS (3)
  - Hyperglycaemia [Recovered/Resolved]
  - Wrong technique in drug usage process [Not Recovered/Not Resolved]
  - Device malfunction [Recovered/Resolved]

NARRATIVE: CASE EVENT DATE: 20140527
